FAERS Safety Report 21194836 (Version 10)
Quarter: 2025Q1

REPORT INFORMATION
  Report Type: Report from Study
  Country: IN (occurrence: IN)
  Receive Date: 20220810
  Receipt Date: 20250228
  Transmission Date: 20250408
  Serious: Yes (Death, Other)
  Sender: NOVARTIS
  Company Number: IN-NOVARTISPH-NVSC2022IN179808

PATIENT
  Age: 57 Year
  Sex: Female
  Weight: 80 kg

DRUGS (4)
  1. RIBOCICLIB [Suspect]
     Active Substance: RIBOCICLIB
     Indication: Hormone receptor positive HER2 negative breast cancer
     Dosage: 600 MG, QD
     Route: 048
     Dates: start: 20220611
  2. RIBOCICLIB [Suspect]
     Active Substance: RIBOCICLIB
     Indication: Breast cancer metastatic
     Dosage: 600 MG, QD
     Route: 048
     Dates: start: 202207
  3. RIBOCICLIB [Suspect]
     Active Substance: RIBOCICLIB
     Dosage: 125 MG, QD
     Route: 048
  4. TAMOXIFEN [Concomitant]
     Active Substance: TAMOXIFEN
     Indication: Product used for unknown indication
     Route: 065

REACTIONS (19)
  - Metastases to lung [Fatal]
  - Dyspnoea [Fatal]
  - Chest discomfort [Fatal]
  - Altered state of consciousness [Recovered/Resolved]
  - Gastric ulcer [Recovering/Resolving]
  - Condition aggravated [Unknown]
  - Bone pain [Not Recovered/Not Resolved]
  - Hypertension [Not Recovered/Not Resolved]
  - Overweight [Not Recovered/Not Resolved]
  - Pelvic pain [Not Recovered/Not Resolved]
  - Arthralgia [Not Recovered/Not Resolved]
  - Headache [Not Recovered/Not Resolved]
  - Mouth ulceration [Recovering/Resolving]
  - Pain [Unknown]
  - Hypokinesia [Unknown]
  - Fall [Unknown]
  - Weight increased [Unknown]
  - Malaise [Unknown]
  - Incorrect dose administered [Unknown]

NARRATIVE: CASE EVENT DATE: 20220701
